FAERS Safety Report 5373830-X (Version None)
Quarter: 2007Q2

REPORT INFORMATION
  Report Type: 
  Country: None (occurrence: None)
  Receive Date: 20070628
  Receipt Date: 20070626
  Transmission Date: 20071010
  Serious: Yes (Death, Hospitalization)
  Sender: FDA-Public Use
  Company Number: IT-SANOFI-SYNTHELABO-F01200700796

PATIENT
  Sex: Female

DRUGS (8)
  1. CAPECITABINE [Suspect]
     Dosage: 3500 MG 14 X PER MONTH
     Route: 048
     Dates: start: 20070501, end: 20070501
  2. BEVACIZUMAB [Suspect]
     Route: 042
     Dates: start: 20070501, end: 20070501
  3. OSIPINE [Concomitant]
     Dosage: UNK
     Route: 065
  4. NEORECORMON [Concomitant]
     Dosage: UNK
     Route: 065
     Dates: start: 20070404
  5. PLASIL [Concomitant]
     Dosage: UNK
     Route: 065
     Dates: start: 20070418
  6. DELTACORTENE [Concomitant]
     Dosage: UNK
     Route: 065
     Dates: start: 20070408
  7. LANSOX [Concomitant]
     Dosage: UNK
     Route: 065
     Dates: start: 20070418
  8. OXALIPLATIN [Suspect]
     Indication: COLORECTAL CANCER
     Route: 042
     Dates: start: 20070501, end: 20070501

REACTIONS (1)
  - INTESTINAL OBSTRUCTION [None]
